FAERS Safety Report 7079042-6 (Version None)
Quarter: 2010Q4

REPORT INFORMATION
  Report Type: 
  Country: None (occurrence: None)
  Receive Date: 20101021
  Receipt Date: 20100915
  Transmission Date: 20110411
  Serious: Yes (Other)
  Sender: FDA-Public Use
  Company Number: DSA_44127_2010

PATIENT
  Age: 58 Year
  Sex: Male

DRUGS (1)
  1. ENALAPRIL MALEATE AND HYDROCHLOROTHIAZIDE [Suspect]
     Indication: PRODUCT USED FOR UNKNOWN INDICATION
     Dosage: (20-12.5 MG TABLET, ORAL)
     Route: 048

REACTIONS (4)
  - COUGH [None]
  - FACE OEDEMA [None]
  - ORAL DISCOMFORT [None]
  - PHARYNGEAL OEDEMA [None]
